FAERS Safety Report 6667685-0 (Version None)
Quarter: 2010Q1

REPORT INFORMATION
  Report Type: 
  Country: None (occurrence: None)
  Receive Date: 20100331
  Receipt Date: 20100311
  Transmission Date: 20100710
  Serious: Yes (Other)
  Sender: FDA-Public Use
  Company Number: 6057145

PATIENT
  Age: 60 Year
  Sex: Female

DRUGS (1)
  1. LEVOTHYROXINE SODIUM [Suspect]
     Indication: HYPOTHYROIDISM
     Dosage: 0.5 DOSAGE FORMS, ORAL
     Route: 048
     Dates: start: 20090828, end: 20090915

REACTIONS (7)
  - BLOOD THYROID STIMULATING HORMONE INCREASED [None]
  - DRUG DISPENSING ERROR [None]
  - FACIAL BONES FRACTURE [None]
  - FALL [None]
  - INCORRECT DOSE ADMINISTERED [None]
  - PRESYNCOPE [None]
  - UNDERDOSE [None]
